FAERS Safety Report 8265210-4 (Version None)
Quarter: 2012Q2

REPORT INFORMATION
  Report Type: 
  Country: None (occurrence: None)
  Receive Date: 20120406
  Receipt Date: 20120403
  Transmission Date: 20120825
  Serious: Yes (Other)
  Sender: FDA-Public Use
  Company Number: HK-PFIZER INC-2012070650

PATIENT
  Age: 75 Year
  Sex: Female

DRUGS (2)
  1. WARFARIN [Concomitant]
     Indication: PROPHYLAXIS
     Dosage: UNK
  2. AMIODARONE HCL [Suspect]
     Indication: ATRIAL FIBRILLATION
     Dosage: UNK

REACTIONS (3)
  - HYPERTHYROIDISM [None]
  - PULMONARY HYPERTENSION [None]
  - RIGHT VENTRICULAR FAILURE [None]
